FAERS Safety Report 10008437 (Version 1)
Quarter: 2014Q1

REPORT INFORMATION
  Report Type: Spontaneous
  Country: US (occurrence: None)
  Receive Date: 20140228
  Receipt Date: 20140228
  Transmission Date: 20141002
  Serious: Yes (Other)
  Sender: FDA-Public Use
  Company Number: 225214

PATIENT
  Age: 59 Year
  Sex: Male

DRUGS (5)
  1. PICATO [Suspect]
     Indication: ACTINIC KERATOSIS
     Dosage: 1 IN 1 D, DERMAL TO FACE
     Dates: start: 20131220
  2. BABY ASPIRIN (ACETYLSALICYLIC ACID) [Concomitant]
  3. LIPITOR (ATORVASTATIN CALCIUM) [Concomitant]
  4. HYDROCOXYUREA (HYDROXYCARBAMIDE) [Concomitant]
  5. LUNESTA [Concomitant]

REACTIONS (2)
  - Application site vesicles [None]
  - Application site pain [None]
